FAERS Safety Report 15206470 (Version 1)
Quarter: 2018Q3

REPORT INFORMATION
  Report Type: Spontaneous
  Country: US (occurrence: US)
  Receive Date: 20180628
  Receipt Date: 20180628
  Transmission Date: 20181010
  Serious: No
  Sender: FDA-Public Use
  Company Number: None

PATIENT
  Age: 23 Year
  Sex: Female

DRUGS (3)
  1. PROBIOTICS [Concomitant]
     Active Substance: PROBIOTICS NOS
  2. CENTRUM WOMEN^S DAILY MULTIVITAMIN [Concomitant]
  3. SKYLA [Suspect]
     Active Substance: LEVONORGESTREL
     Indication: CONTRACEPTION
     Dosage: ?          QUANTITY:1 IUD;?

REACTIONS (4)
  - Depression [None]
  - Alopecia [None]
  - Weight increased [None]
  - Acne [None]

NARRATIVE: CASE EVENT DATE: 20180628
